FAERS Safety Report 24137820 (Version 1)
Quarter: 2024Q3

REPORT INFORMATION
  Report Type: Spontaneous
  Country: US (occurrence: None)
  Receive Date: 20240725
  Receipt Date: 20240725
  Transmission Date: 20241017
  Serious: Yes (Other)
  Sender: Public
  Company Number: None

PATIENT
  Age: 59 Year
  Sex: Male
  Weight: 84.6 kg

DRUGS (2)
  1. PROMETHAZINE [Suspect]
     Active Substance: PROMETHAZINE HYDROCHLORIDE
     Indication: Nausea
     Dosage: 25 MG X1 INTRAMUSCULAR ?
     Route: 030
     Dates: start: 20240525, end: 20240525
  2. PROMETHAZINE [Suspect]
     Active Substance: PROMETHAZINE HYDROCHLORIDE
     Indication: Vomiting

REACTIONS (5)
  - Drug hypersensitivity [None]
  - Injection site erythema [None]
  - Hiccups [None]
  - Skin ulcer [None]
  - Wound necrosis [None]

NARRATIVE: CASE EVENT DATE: 20240525
